FAERS Safety Report 4713528-1 (Version None)
Quarter: 2005Q3

REPORT INFORMATION
  Report Type: 
  Country: None (occurrence: None)
  Receive Date: 20050711
  Receipt Date: 20050627
  Transmission Date: 20060218
  Serious: Yes (Death)
  Sender: FDA-Public Use
  Company Number: 2004228431CA

PATIENT
  Sex: Female

DRUGS (1)
  1. DEPO-PROVERA [Suspect]
     Indication: CONTRACEPTION
     Dosage: 150 MG (150 MG, FIRST INJECTION), INTRAMUSCULAR
     Route: 030
     Dates: start: 20040708, end: 20050708

REACTIONS (4)
  - DRUG EXPOSURE DURING PREGNANCY [None]
  - IRRITABILITY [None]
  - PREGNANCY WITH INJECTABLE CONTRACEPTIVE [None]
  - SUDDEN DEATH [None]
